FAERS Safety Report 5907245-X (Version None)
Quarter: 2008Q4

REPORT INFORMATION
  Report Type: 
  Country: None (occurrence: None)
  Receive Date: 20081003
  Receipt Date: 20080925
  Transmission Date: 20090506
  Serious: Yes (Hospitalization, Other)
  Sender: FDA-Public Use
  Company Number: PHHY2008FR22590

PATIENT
  Sex: Female

DRUGS (9)
  1. ESIDRIX [Suspect]
     Dosage: 25 MG, QD
     Route: 048
     Dates: end: 20080419
  2. COLCHIMAX                               /FRA/ [Suspect]
     Indication: GOUT
     Dosage: 1 DF, QD
     Route: 048
  3. ZYLORIC ^FRESENIUS^ [Concomitant]
     Indication: GOUT
     Dosage: 300 MG, QD
     Route: 048
     Dates: end: 20080424
  4. LASIX [Concomitant]
     Dosage: 500 UNK, UNK
  5. ASPEGIC 325 [Concomitant]
     Dosage: 250 MG, UNK
  6. RAMIPRIL [Concomitant]
     Dosage: 2.5 MG, UNK
  7. SINTROM [Concomitant]
  8. ALDACTONE [Concomitant]
     Dosage: 25 UNK, UNK
  9. CARDENSIEL [Concomitant]

REACTIONS (12)
  - ANOREXIA [None]
  - BLOOD CREATININE INCREASED [None]
  - CARDIAC FAILURE [None]
  - CREATININE RENAL CLEARANCE DECREASED [None]
  - DEHYDRATION [None]
  - GASTROINTESTINAL DISORDER [None]
  - GASTROINTESTINAL PAIN [None]
  - HAEMODIALYSIS [None]
  - HYPONATRAEMIA [None]
  - RENAL FAILURE ACUTE [None]
  - VOMITING [None]
  - WEIGHT INCREASED [None]
